FAERS Safety Report 4440040-X (Version None)
Quarter: 2004Q3

REPORT INFORMATION
  Report Type: 
  Country: None (occurrence: None)
  Receive Date: 20040902
  Receipt Date: 20040517
  Transmission Date: 20050211
  Serious: Yes (Hospitalization)
  Sender: FDA-Public Use
  Company Number: PHHO2004TR07031

PATIENT
  Age: 50 Year
  Sex: Female
  Weight: 60 kg

DRUGS (4)
  1. NEORAL [Suspect]
     Indication: RENAL TRANSPLANT
     Dosage: 350 MG / DAY
     Route: 048
     Dates: start: 20040512, end: 20040515
  2. NEORAL [Suspect]
     Dosage: 350 MG / DAY
     Route: 048
     Dates: start: 20040523
  3. MYFORTIC [Concomitant]
     Indication: RENAL TRANSPLANT
     Dosage: 1440 MG / DAY
     Route: 048
     Dates: start: 20040512, end: 20040515
  4. MYFORTIC [Concomitant]
     Dosage: 1440 MG / DAY
     Route: 048
     Dates: start: 20040523

REACTIONS (2)
  - KIDNEY TRANSPLANT REJECTION [None]
  - URINE OUTPUT DECREASED [None]
